FAERS Safety Report 8601200-7 (Version None)
Quarter: 2012Q3

REPORT INFORMATION
  Report Type: 
  Country: None (occurrence: None)
  Receive Date: 20120817
  Receipt Date: 20120814
  Transmission Date: 20120928
  Serious: Yes (Other)
  Sender: FDA-Public Use
  Company Number: PHHY2012BR062520

PATIENT
  Sex: Male

DRUGS (3)
  1. METFORMIN HCL [Concomitant]
     Indication: DIABETES MELLITUS
     Dosage: 2 DF, DAILY
     Route: 048
     Dates: start: 20120601
  2. ASPIRIN [Concomitant]
     Indication: ANTICOAGULANT THERAPY
     Dosage: 1 DF, DAILY
     Route: 048
  3. FORMOTEROL FUMARATE [Suspect]
     Indication: EMPHYSEMA
     Dosage: 12/400 MCG TWICE DAILY

REACTIONS (3)
  - OPEN WOUND [None]
  - OEDEMA PERIPHERAL [None]
  - WOUND SECRETION [None]
